FAERS Safety Report 5294499-9 (Version None)
Quarter: 2007Q2

REPORT INFORMATION
  Report Type: 
  Country: None (occurrence: None)
  Receive Date: 20070406
  Receipt Date: 20070326
  Transmission Date: 20071010
  Serious: Yes (Death)
  Sender: FDA-Public Use
  Company Number: CERZ-11583

PATIENT
  Age: 71 Year
  Sex: Female
  Weight: 54.1 kg

DRUGS (1)
  1. CEREZYME [Suspect]
     Indication: GAUCHER'S DISEASE
     Dosage: 66 U/KG Q2WKS IV
     Route: 042
     Dates: start: 19970327

REACTIONS (1)
  - DEATH [None]
